FAERS Safety Report 9399750 (Version 1)
Quarter: 2013Q3

REPORT INFORMATION
  Report Type: Spontaneous
  Country: ES (occurrence: None)
  Receive Date: 20130710
  Receipt Date: 20130710
  Transmission Date: 20140515
  Serious: Yes (Hospitalization)
  Sender: FDA-Public Use
  Company Number: VAL_02604_2013

PATIENT
  Age: 71 Year
  Sex: Female

DRUGS (4)
  1. CALCITRIOL [Suspect]
     Indication: HYPOPARATHYROIDISM
     Dosage: 1UG, (DF)
  2. CALCIUM CARBONATE [Suspect]
     Indication: HYPOPARATHYROIDISM
     Dosage: 900 MG (DF)
  3. LISINOPRIL W/HYDROCHLOROTHIAZIDE [Suspect]
     Indication: HYPERTENSION
     Dosage: (20/12.5 MG/DAY)
  4. LEVOTHYROXINE [Concomitant]

REACTIONS (7)
  - Polyuria [None]
  - Fatigue [None]
  - Nervousness [None]
  - Insomnia [None]
  - Headache [None]
  - Blood creatinine increased [None]
  - Nocturia [None]
